FAERS Safety Report 8609299 (Version 2)
Quarter: 2013Q2

REPORT INFORMATION
  Report Type: Spontaneous
  Country: US (occurrence: US)
  Receive Date: 20120611
  Receipt Date: 20130515
  Transmission Date: 20140414
  Serious: No
  Sender: FDA-Public Use
  Company Number: US-ASTRAZENECA-2012SE09981

PATIENT
  Age: 50 Year
  Sex: Male
  Weight: 102.1 kg

DRUGS (17)
  1. PULMICORT FLEXHALER [Suspect]
     Indication: ASTHMA
     Dosage: 360 MCG, QD
     Route: 055
     Dates: start: 201111
  2. PULMICORT FLEXHALER [Suspect]
     Indication: ASTHMA
     Dosage: 180 MCG, 2 PUFFS BID
     Route: 055
  3. PULMICORT FLEXHALER [Suspect]
     Indication: ASTHMA
     Dosage: 2 PUFFS QD
     Route: 055
  4. PRILOSEC OTC [Suspect]
     Indication: DYSPEPSIA
     Route: 048
  5. ALBUTEROL [Concomitant]
  6. CLONAZEPAM [Concomitant]
  7. LOSARTEN [Concomitant]
  8. FLEXERIL [Concomitant]
  9. PAXIL [Concomitant]
  10. OXYCODONE [Concomitant]
  11. MULTIVITAMIN [Concomitant]
  12. MANY SUPPLEMENTS [Concomitant]
  13. UBIQUINOL [Concomitant]
  14. FISH OIL [Concomitant]
  15. COZAAR [Concomitant]
  16. GENERIC NASAL SPRAY [Concomitant]
  17. FIBER SUPPLEMENT [Concomitant]

REACTIONS (12)
  - Adverse drug reaction [Unknown]
  - Nasopharyngitis [Unknown]
  - Asthma [Unknown]
  - Adverse event [Unknown]
  - Dyspnoea [Unknown]
  - Asthma [Unknown]
  - Pulmonary congestion [Unknown]
  - Chest pain [Unknown]
  - Throat irritation [Unknown]
  - Dyspepsia [Unknown]
  - Intentional drug misuse [Unknown]
  - Drug ineffective [Unknown]
